FAERS Safety Report 9163004 (Version 1)
Quarter: 2013Q1

REPORT INFORMATION
  Report Type: Report from Study
  Country: US (occurrence: US)
  Receive Date: 20130314
  Receipt Date: 20130314
  Transmission Date: 20140127
  Serious: Yes (Other)
  Sender: FDA-Public Use
  Company Number: US-ABBOTT-13P-163-1059788-00

PATIENT
  Age: 44 Year
  Sex: Female
  Weight: 43.04 kg

DRUGS (10)
  1. HUMIRA [Suspect]
     Indication: RHEUMATOID ARTHRITIS
  2. PLAQUENIL [Concomitant]
     Indication: ARTHRITIS
  3. MOBIC [Concomitant]
     Indication: ARTHRITIS
  4. FOLIC ACID [Concomitant]
     Indication: PRODUCT USED FOR UNKNOWN INDICATION
  5. LORTAB [Concomitant]
     Indication: ARTHRALGIA
  6. FIORICET [Concomitant]
     Indication: MIGRAINE
  7. LORATADINE [Concomitant]
     Indication: HYPERSENSITIVITY
  8. AMBIEN [Concomitant]
     Indication: INSOMNIA
  9. WELLBUTRIN [Concomitant]
     Indication: DEPRESSION
  10. MELOXICAM [Concomitant]
     Indication: PRODUCT USED FOR UNKNOWN INDICATION

REACTIONS (10)
  - Exostosis [Unknown]
  - Arthralgia [Recovered/Resolved]
  - Pain in extremity [Recovered/Resolved]
  - Pneumonia [Unknown]
  - Influenza [Unknown]
  - Sinusitis [Unknown]
  - Device malfunction [Unknown]
  - Injection site extravasation [Unknown]
  - Incorrect dose administered [Unknown]
  - Injection site urticaria [Unknown]
